FAERS Safety Report 7298808-0 (Version None)
Quarter: 2011Q1

REPORT INFORMATION
  Report Type: 
  Country: None (occurrence: None)
  Receive Date: 20110217
  Receipt Date: 20110209
  Transmission Date: 20110831
  Serious: Yes (Other)
  Sender: FDA-Public Use
  Company Number: US-RB-020725-11

PATIENT
  Age: 60 Year
  Sex: Female

DRUGS (2)
  1. MUCINEX [Suspect]
     Indication: SINUS DISORDER
     Dosage: ON 31-JAN-2011
     Route: 048
  2. MUCINEX [Suspect]
     Dosage: ON 06-FEB-2011
     Route: 048

REACTIONS (3)
  - OFF LABEL USE [None]
  - EPISTAXIS [None]
  - HYPERTENSION [None]
